FAERS Safety Report 13882617 (Version 3)
Quarter: 2017Q4

REPORT INFORMATION
  Report Type: Spontaneous
  Country: FR (occurrence: FR)
  Receive Date: 20170818
  Receipt Date: 20171031
  Transmission Date: 20180320
  Serious: Yes (Other)
  Sender: FDA-Public Use
  Company Number: FR-VERTEX PHARMACEUTICALS-2017-004421

PATIENT
  Age: 28 Year
  Sex: Male

DRUGS (1)
  1. ORKAMBI [Suspect]
     Active Substance: IVACAFTOR\LUMACAFTOR
     Indication: CYSTIC FIBROSIS
     Dosage: FULL DOSE
     Route: 048
     Dates: start: 201704, end: 201706

REACTIONS (2)
  - Lung transplant [Unknown]
  - Drug ineffective [Unknown]

NARRATIVE: CASE EVENT DATE: 201706
